FAERS Safety Report 8277004-4 (Version None)
Quarter: 2012Q2

REPORT INFORMATION
  Report Type: 
  Country: None (occurrence: None)
  Receive Date: 20120412
  Receipt Date: 20120405
  Transmission Date: 20120825
  Serious: Yes (Hospitalization)
  Sender: FDA-Public Use
  Company Number: US-AMGEN-USASP2011019695

PATIENT
  Age: 58 Year
  Sex: Male
  Weight: 143 kg

DRUGS (2)
  1. ENBREL [Suspect]
     Indication: PSORIATIC ARTHROPATHY
     Dosage: 50 MG, QWK
     Route: 058
     Dates: start: 20090811, end: 20110124
  2. ENBREL [Suspect]
     Indication: PSORIASIS
     Dosage: 50 MG, QWK
     Route: 058
     Dates: start: 20111114

REACTIONS (3)
  - PSORIATIC ARTHROPATHY [None]
  - AORTIC VALVE INCOMPETENCE [None]
  - PSORIASIS [None]
